FAERS Safety Report 4575890-2 (Version None)
Quarter: 2005Q1

REPORT INFORMATION
  Report Type: 
  Country: None (occurrence: None)
  Receive Date: 20050204
  Receipt Date: 20050126
  Transmission Date: 20050727
  Serious: Yes (Hospitalization)
  Sender: FDA-Public Use
  Company Number: 2004GB02033

PATIENT
  Age: 64 Year
  Sex: Female
  Weight: 89.5 kg

DRUGS (6)
  1. ARIMIDEX [Suspect]
     Indication: BREAST CANCER
     Dosage: 1 MG QD PO
     Route: 048
     Dates: start: 19980722, end: 20030721
  2. ATENOLOL [Concomitant]
  3. LOCOID [Concomitant]
  4. QUININE SULPHATE [Concomitant]
  5. BENDROFLUAZIDE [Concomitant]
  6. CO-PROXAMOL [Concomitant]

REACTIONS (3)
  - HAEMOGLOBIN DECREASED [None]
  - OSTEOARTHRITIS [None]
  - POST PROCEDURAL COMPLICATION [None]
